FAERS Safety Report 18059992 (Version 1)
Quarter: 2020Q3

REPORT INFORMATION
  Report Type: Spontaneous
  Country: IE (occurrence: IE)
  Receive Date: 20200723
  Receipt Date: 20200723
  Transmission Date: 20201103
  Serious: No
  Sender: FDA-Public Use
  Company Number: IE-RECKITT BENCKISER HEALTHCARE INT LIMITED-RB-91395-2019

PATIENT
  Sex: Female

DRUGS (1)
  1. MUCINEX DM MAXIMUM STRENGTH [Suspect]
     Active Substance: DEXTROMETHORPHAN HYDROBROMIDE\GUAIFENESIN
     Indication: PRODUCT USED FOR UNKNOWN INDICATION
     Dosage: 1200 MILLIGRAM, BID,  3 HOURS APART
     Route: 065
     Dates: start: 20191007

REACTIONS (2)
  - Intercepted product selection error [Unknown]
  - Product use issue [Unknown]
